FAERS Safety Report 9186888 (Version 1)
Quarter: 2013Q1

REPORT INFORMATION
  Report Type: Spontaneous
  Country: GB (occurrence: GB)
  Receive Date: 20130325
  Receipt Date: 20130325
  Transmission Date: 20140127
  Serious: Yes (Other)
  Sender: FDA-Public Use
  Company Number: GB-RANBAXY-2013R1-66527

PATIENT
  Age: 35 Year
  Sex: Female
  Weight: 58.96 kg

DRUGS (2)
  1. AMOXICILLIN [Suspect]
     Indication: PRODUCT USED FOR UNKNOWN INDICATION
     Dosage: UNK
     Route: 065
  2. CO-CODAMOL [Interacting]
     Indication: ANALGESIC THERAPY
     Dosage: UNK
     Route: 048
     Dates: start: 20130228, end: 20130228

REACTIONS (3)
  - Drug interaction [Unknown]
  - Vomiting [Recovered/Resolved]
  - Dizziness [Recovered/Resolved]
